FAERS Safety Report 5620015-5 (Version None)
Quarter: 2008Q1

REPORT INFORMATION
  Report Type: 
  Country: None (occurrence: None)
  Receive Date: 20080208
  Receipt Date: 20071102
  Transmission Date: 20080703
  Serious: Yes (Hospitalization)
  Sender: FDA-Public Use
  Company Number: US-ABBOTT-07P-163-0423480-00

PATIENT
  Sex: Male
  Weight: 83.082 kg

DRUGS (1)
  1. KALETRA [Suspect]
     Indication: HIV TEST POSITIVE
     Route: 048

REACTIONS (2)
  - CHEST PAIN [None]
  - CORONARY ARTERY DISEASE [None]
